FAERS Safety Report 5383295-X (Version None)
Quarter: 2007Q3

REPORT INFORMATION
  Report Type: 
  Country: None (occurrence: None)
  Receive Date: 20070710
  Receipt Date: 20070629
  Transmission Date: 20080115
  Serious: Yes (Life-Threatening)
  Sender: FDA-Public Use
  Company Number: JP-SANOFI-SYNTHELABO-A01200705958

PATIENT
  Sex: Male
  Weight: 50 kg

DRUGS (6)
  1. MMD [Concomitant]
     Indication: DRUG USE FOR UNKNOWN INDICATION
     Dosage: UNK
     Route: 065
     Dates: end: 20070601
  2. TICLOPIDINE HCL [Concomitant]
     Indication: DRUG USE FOR UNKNOWN INDICATION
     Dosage: UNK
     Route: 065
     Dates: end: 20070522
  3. ROZAGOOD [Concomitant]
     Indication: CEREBRAL INFARCTION
     Route: 048
     Dates: start: 20070412
  4. SAWACHION [Concomitant]
     Indication: CEREBRAL INFARCTION
     Route: 048
     Dates: start: 20070412
  5. PLAVIX [Suspect]
     Indication: CEREBRAL INFARCTION
     Route: 048
     Dates: start: 20070521, end: 20070601
  6. WARFARIN SODIUM [Concomitant]
     Indication: CEREBRAL INFARCTION
     Route: 048
     Dates: start: 20070412

REACTIONS (7)
  - BLOOD ALBUMIN DECREASED [None]
  - DISSEMINATED INTRAVASCULAR COAGULATION [None]
  - LYMPHOCYTE STIMULATION TEST POSITIVE [None]
  - PLATELET COUNT DECREASED [None]
  - PNEUMONIA ASPIRATION [None]
  - VOMITING [None]
  - WHITE BLOOD CELL COUNT DECREASED [None]
